FAERS Safety Report 13853980 (Version 1)
Quarter: 2017Q3

REPORT INFORMATION
  Report Type: Spontaneous
  Country: US (occurrence: US)
  Receive Date: 20170809
  Receipt Date: 20170809
  Transmission Date: 20171127
  Serious: Yes (Hospitalization, Other)
  Sender: FDA-Public Use
  Company Number: US-ELI_LILLY_AND_COMPANY-US201608001882

PATIENT
  Age: 39 Year
  Sex: Male
  Weight: 88 kg

DRUGS (1)
  1. CYMBALTA [Suspect]
     Active Substance: DULOXETINE HYDROCHLORIDE
     Indication: PRODUCT USED FOR UNKNOWN INDICATION
     Dosage: 60 UNK, UNK
     Route: 048

REACTIONS (8)
  - Carotid arteriosclerosis [Unknown]
  - Drug withdrawal syndrome [Unknown]
  - Cerebrovascular accident [Unknown]
  - Cardiac output decreased [Unknown]
  - Peripheral vascular disorder [Unknown]
  - Hypersomnia [Unknown]
  - Thalamic infarction [Unknown]
  - Carotid artery stenosis [Unknown]

NARRATIVE: CASE EVENT DATE: 200804
